FAERS Safety Report 15891819 (Version 1)
Quarter: 2019Q1

REPORT INFORMATION
  Report Type: Spontaneous
  Country: US (occurrence: US)
  Receive Date: 20190130
  Receipt Date: 20190130
  Transmission Date: 20190417
  Serious: No
  Sender: FDA-Public Use
  Company Number: US-PFIZER INC-2019035597

PATIENT
  Age: 61 Year
  Sex: Male
  Weight: 133 kg

DRUGS (1)
  1. CELEBREX [Suspect]
     Active Substance: CELECOXIB
     Indication: NERVE INJURY
     Dosage: 200 MG, 2X/DAY [EVERY 12 HOURS WITH FOOD]
     Route: 048

REACTIONS (2)
  - Insomnia [Unknown]
  - Product use in unapproved indication [Unknown]
